FAERS Safety Report 16969586 (Version 1)
Quarter: 2019Q4

REPORT INFORMATION
  Report Type: Spontaneous
  Country: BR (occurrence: BR)
  Receive Date: 20191029
  Receipt Date: 20191029
  Transmission Date: 20200122
  Serious: Yes (Other)
  Sender: FDA-Public Use
  Company Number: BR-ABBVIE-19P-020-2980703-00

PATIENT
  Age: 56 Year
  Sex: Female

DRUGS (3)
  1. VEROTINA [Concomitant]
     Indication: AFFECTIVE DISORDER
     Dosage: ONCE A DAY BUT SOMETIMES SHE INTERRUPTS THE TREATMENT AND LATER SHE RESUMES IT
  2. SYNTHROID [Suspect]
     Active Substance: LEVOTHYROXINE SODIUM
     Indication: HYPOTHYROIDISM
     Dosage: DAILY DOSE: 1 TAB, IN THE MORNING (FASTING)
     Route: 048
  3. DIOVAN HCT [Concomitant]
     Active Substance: HYDROCHLOROTHIAZIDE\VALSARTAN
     Indication: HYPERTENSION
     Dosage: DAILY DOSE: 1 TAB 160/25, IN THE MORNING;
     Dates: start: 2014

REACTIONS (4)
  - Breast cancer [Unknown]
  - Asthmatic crisis [Recovering/Resolving]
  - Glucose tolerance impaired [Unknown]
  - Bronchitis [Recovering/Resolving]

NARRATIVE: CASE EVENT DATE: 2005
